FAERS Safety Report 8161173-0 (Version None)
Quarter: 2012Q1

REPORT INFORMATION
  Report Type: 
  Country: None (occurrence: None)
  Receive Date: 20120103
  Receipt Date: 20111115
  Transmission Date: 20120608
  Serious: No
  Sender: FDA-Public Use
  Company Number: AE-2011-003505

PATIENT
  Age: 59 Year
  Sex: Male

DRUGS (3)
  1. COPEGUS [Concomitant]
  2. INCIVEK [Suspect]
     Dosage: 2250 MG (750 MG, EVERY 7-9 HOURS), ORAL
     Route: 048
     Dates: start: 20111012
  3. PEGASYS [Concomitant]

REACTIONS (2)
  - SWELLING [None]
  - WEIGHT INCREASED [None]
